FAERS Safety Report 24144463 (Version 1)
Quarter: 2024Q3

REPORT INFORMATION
  Report Type: Spontaneous
  Country: US (occurrence: US)
  Receive Date: 20240728
  Receipt Date: 20240728
  Transmission Date: 20241017
  Serious: No
  Sender: DR REDDYS
  Company Number: US-E2BLSMVVAL-SPO/USA/24/0010544

PATIENT
  Age: 73 Year
  Sex: Male
  Weight: 102 kg

DRUGS (2)
  1. FLUOROURACIL [Suspect]
     Active Substance: FLUOROURACIL
     Indication: Neoplasm malignant
     Dosage: APPLY TO SCALP TWICE A DAY.
     Dates: start: 20240702, end: 20240715
  2. sem-gluten [Concomitant]
     Indication: Product used for unknown indication
     Dates: start: 20240702

REACTIONS (1)
  - Skin discolouration [Unknown]

NARRATIVE: CASE EVENT DATE: 20240715
